FAERS Safety Report 19014268 (Version 1)
Quarter: 2021Q1

REPORT INFORMATION
  Report Type: Report from Study
  Country: KR (occurrence: KR)
  Receive Date: 20210316
  Receipt Date: 20210316
  Transmission Date: 20210420
  Serious: Yes (Hospitalization)
  Sender: FDA-Public Use
  Company Number: KR-TAKEDA-2021TUS014917

PATIENT
  Age: 57 Year
  Sex: Male
  Weight: 54.5 kg

DRUGS (26)
  1. GASMOTIN [Concomitant]
     Active Substance: MOSAPRIDE CITRATE
     Indication: DYSPEPSIA
     Dosage: 5 MILLIGRAM, BID
     Route: 048
     Dates: start: 20190826, end: 20210303
  2. PENTASA [Concomitant]
     Active Substance: MESALAMINE
     Dosage: 1500 MILLIGRAM, BID
     Route: 048
     Dates: start: 20040326, end: 20040422
  3. PENTASA [Concomitant]
     Active Substance: MESALAMINE
     Dosage: 2000 MILLIGRAM, BID
     Route: 048
     Dates: start: 20131001, end: 20131223
  4. VEDOLIZUMAB [Suspect]
     Active Substance: VEDOLIZUMAB
     Indication: CROHN^S DISEASE
     Dosage: 300 MILLIGRAM
     Route: 042
     Dates: start: 20201130
  5. ALMAGEL [ALUMINIUM HYDROXIDE;MAGNESIUM HYDROXIDE] [Concomitant]
     Active Substance: ALUMINUM HYDROXIDE\MAGNESIUM HYDROXIDE
     Indication: DYSPEPSIA
     Dosage: 15 MILLILITER, TID
     Route: 048
     Dates: start: 20201113, end: 20201213
  6. PENTASA [Concomitant]
     Active Substance: MESALAMINE
     Dosage: 1000 MILLIGRAM, QD
     Route: 048
     Dates: start: 20131224, end: 20141222
  7. FERINJECT [Concomitant]
     Active Substance: FERRIC CARBOXYMALTOSE
     Indication: ANAEMIA
     Dosage: 10 MILLILITER, QD
     Route: 042
     Dates: start: 20201130, end: 20201130
  8. PENTASA [Concomitant]
     Active Substance: MESALAMINE
     Dosage: 500 MILLIGRAM, TID
     Route: 048
     Dates: start: 20000614, end: 20011120
  9. PENTASA [Concomitant]
     Active Substance: MESALAMINE
     Dosage: 100 MILLIGRAM, TID
     Route: 048
     Dates: start: 20011121, end: 20011211
  10. PENTASA [Concomitant]
     Active Substance: MESALAMINE
     Dosage: 1000 MILLIGRAM, QD
     Route: 048
     Dates: start: 20130305, end: 20130617
  11. PENTASA [Concomitant]
     Active Substance: MESALAMINE
     Dosage: 2000 MILLIGRAM, BID
     Route: 048
     Dates: start: 20141223, end: 20150208
  12. MEDILAC DS [Concomitant]
     Indication: DYSPEPSIA
     Dosage: 250 MILLIGRAM, BID
     Dates: start: 20200406, end: 20210303
  13. VALIUM [Concomitant]
     Active Substance: DIAZEPAM
     Indication: SLEEP DISORDER
     Dosage: 5 MILLIGRAM, QD
     Route: 048
     Dates: start: 20201130, end: 20201213
  14. HYSPAN [Concomitant]
     Active Substance: BUTYLSCOPOLAMINE BROMIDE
     Indication: PREMEDICATION
     Dosage: 20 MILLIGRAM, QD
     Route: 042
     Dates: start: 20210304, end: 20210304
  15. PENTASA [Concomitant]
     Active Substance: MESALAMINE
     Dosage: 1000 MILLIGRAM, QID
     Route: 048
     Dates: start: 20000308, end: 20000615
  16. PENTASA [Concomitant]
     Active Substance: MESALAMINE
     Dosage: 1500 MILLIGRAM, BID
     Route: 048
     Dates: start: 20130305, end: 20130617
  17. PENTASA [Concomitant]
     Active Substance: MESALAMINE
     Dosage: 1000 MILLIGRAM, TID
     Route: 048
     Dates: start: 20020809, end: 20021010
  18. PENTASA [Concomitant]
     Active Substance: MESALAMINE
     Dosage: 1500 MILLIGRAM, TID
     Route: 048
     Dates: start: 20040423, end: 20101114
  19. PENTASA [Concomitant]
     Active Substance: MESALAMINE
     Dosage: 1500 MILLIGRAM, BID
     Route: 048
     Dates: start: 20101115, end: 20130304
  20. PENTASA [Concomitant]
     Active Substance: MESALAMINE
     Dosage: 2 MILLIGRAM, BID
     Route: 048
     Dates: start: 20161107
  21. ESOMEZOLE [Concomitant]
     Indication: DYSPEPSIA
     Dosage: 20 MILLIGRAM
     Route: 048
     Dates: start: 20200406, end: 20210303
  22. PENTASA [Concomitant]
     Active Substance: MESALAMINE
     Dosage: 1500 MILLIGRAM, TID
     Route: 048
     Dates: start: 20011212, end: 20020808
  23. PENTASA [Concomitant]
     Active Substance: MESALAMINE
     Dosage: 1500 MILLIGRAM, TID
     Route: 048
     Dates: start: 20021011, end: 20040325
  24. PENTASA [Concomitant]
     Active Substance: MESALAMINE
     Dosage: 1500 MILLIGRAM, BID
     Route: 048
     Dates: start: 20131224, end: 20141222
  25. TWYNSTA [Concomitant]
     Active Substance: AMLODIPINE BESYLATE\TELMISARTAN
     Indication: HYPERTENSION
     Dosage: UNK UNK, QD
     Route: 048
     Dates: start: 20200217, end: 20210303
  26. PENTASA [Concomitant]
     Active Substance: MESALAMINE
     Dosage: 1000 MILLIGRAM, BID
     Route: 048
     Dates: start: 20150209, end: 20150517

REACTIONS (2)
  - Pyrexia [Recovered/Resolved]
  - Crohn^s disease [Recovered/Resolved]

NARRATIVE: CASE EVENT DATE: 20210304
